FAERS Safety Report 5349927-7 (Version None)
Quarter: 2007Q2

REPORT INFORMATION
  Report Type: 
  Country: None (occurrence: None)
  Receive Date: 20070607
  Receipt Date: 20070530
  Transmission Date: 20071010
  Serious: Yes (Hospitalization, Other)
  Sender: FDA-Public Use
  Company Number: GB-PFIZER INC-2007044400

PATIENT
  Age: 63 Year
  Sex: Female

DRUGS (9)
  1. LYRICA [Suspect]
     Indication: NEURALGIA
     Route: 048
     Dates: start: 20070312, end: 20070418
  2. ACETYLSALICYLIC ACID SRT [Concomitant]
     Route: 048
  3. AZATHIOPRINE [Concomitant]
     Route: 048
  4. CALCICHEW-D3 [Concomitant]
     Dosage: FREQ:TWICE DAILY
     Route: 048
  5. FOSAMAX [Concomitant]
     Route: 048
  6. LANSOPRAZOLE [Concomitant]
     Route: 048
  7. LERCANIDIPINE [Concomitant]
     Route: 048
  8. PREDNISOLONE [Concomitant]
     Route: 048
  9. PROGYNOVA [Concomitant]
     Route: 048

REACTIONS (2)
  - CATATONIA [None]
  - DEPRESSION [None]
